FAERS Safety Report 22339950 (Version 2)
Quarter: 2024Q2

REPORT INFORMATION
  Report Type: Spontaneous
  Country: US (occurrence: US)
  Receive Date: 20230518
  Receipt Date: 20240502
  Transmission Date: 20240716
  Serious: No
  Sender: FDA-Public Use
  Company Number: US-JNJFOC-20230542418

PATIENT
  Age: 18 Year
  Sex: Male
  Weight: 77.18 kg

DRUGS (1)
  1. CONCERTA [Suspect]
     Active Substance: METHYLPHENIDATE HYDROCHLORIDE
     Indication: Attention deficit hyperactivity disorder
     Route: 048

REACTIONS (10)
  - Decreased appetite [Unknown]
  - Impulsive behaviour [Unknown]
  - Sleep disorder [Unknown]
  - Mood altered [Unknown]
  - Paranoia [Unknown]
  - Adverse drug reaction [Unknown]
  - Weight decreased [Unknown]
  - Abnormal behaviour [Unknown]
  - Suspected counterfeit product [Unknown]
  - Expired product administered [Unknown]

NARRATIVE: CASE EVENT DATE: 20230101
